FAERS Safety Report 12679459 (Version 1)
Quarter: 2016Q3

REPORT INFORMATION
  Report Type: Spontaneous
  Country: US (occurrence: US)
  Receive Date: 20160824
  Receipt Date: 20160824
  Transmission Date: 20161109
  Serious: No
  Sender: FDA-Public Use
  Company Number: US-AUROBINDO-AUR-APU-2016-06177

PATIENT
  Age: 74 Year
  Sex: Female
  Weight: 65.77 kg

DRUGS (1)
  1. DEXTROAMPHETAMINE SULFATE TABLETS, USP 5 MG [Suspect]
     Active Substance: DEXTROAMPHETAMINE SULFATE
     Indication: ATTENTION DEFICIT/HYPERACTIVITY DISORDER
     Dosage: THREE QUARTERS OF 5MG PER DAY
     Route: 065
     Dates: start: 20160511, end: 20160514

REACTIONS (3)
  - Abdominal discomfort [Recovering/Resolving]
  - Diarrhoea [Not Recovered/Not Resolved]
  - Wrong technique in product usage process [Recovering/Resolving]

NARRATIVE: CASE EVENT DATE: 20160513
